FAERS Safety Report 4992836-3 (Version None)
Quarter: 2006Q2

REPORT INFORMATION
  Report Type: 
  Country: None (occurrence: None)
  Receive Date: 20060504
  Receipt Date: 20060215
  Transmission Date: 20061013
  Serious: Yes (Death, Other)
  Sender: FDA-Public Use
  Company Number: JP-MERCK-0602USA05162

PATIENT
  Age: 56 Year
  Sex: Male
  Weight: 68 kg

DRUGS (26)
  1. GRAN [Concomitant]
     Route: 058
     Dates: start: 20040430, end: 20040430
  2. MEYLON [Concomitant]
     Route: 042
     Dates: start: 20040422, end: 20040426
  3. MEYLON [Concomitant]
     Route: 042
     Dates: start: 20040427, end: 20040430
  4. ALLOPURINOL [Concomitant]
     Route: 048
     Dates: start: 20040426, end: 20040428
  5. SOSEGON [Concomitant]
     Route: 048
     Dates: start: 20040429, end: 20040430
  6. ATARAX [Concomitant]
     Route: 042
     Dates: start: 20040429, end: 20040430
  7. MEROPENEM [Concomitant]
     Route: 042
     Dates: start: 20040430, end: 20040430
  8. PRIMPERAN TAB [Concomitant]
     Indication: VOMITING
     Route: 042
     Dates: start: 20040429
  9. SAXIZON [Concomitant]
     Indication: PYREXIA
     Route: 042
     Dates: start: 20040429
  10. SODIUM CHLORIDE [Concomitant]
     Route: 041
     Dates: start: 20040429, end: 20040430
  11. [THERAPY UNSPECIFIED] [Concomitant]
     Route: 065
     Dates: start: 20040430, end: 20040430
  12. PEPCID [Suspect]
     Indication: PROPHYLAXIS AGAINST GASTROINTESTINAL ULCER
     Route: 048
     Dates: start: 20040420, end: 20040428
  13. LASTET [Suspect]
     Route: 042
     Dates: start: 20040422, end: 20040426
  14. ONCOVIN [Suspect]
     Route: 042
     Dates: start: 20040422, end: 20040425
  15. ADRIACIN [Suspect]
     Route: 042
     Dates: start: 20040422, end: 20040425
  16. LASIX [Concomitant]
     Indication: POLYURIA
     Route: 048
     Dates: start: 20040420, end: 20040428
  17. PEPCID [Suspect]
     Route: 042
     Dates: start: 20040429, end: 20040430
  18. ADALAT [Concomitant]
     Route: 048
     Dates: start: 20040422, end: 20040428
  19. DECADRON [Suspect]
     Route: 042
     Dates: start: 20040422, end: 20040425
  20. KYTRIL [Concomitant]
     Route: 042
     Dates: start: 20040422, end: 20040426
  21. PANTOSIN [Concomitant]
     Route: 048
     Dates: start: 20040423, end: 20040428
  22. MAGNESIUM OXIDE [Concomitant]
     Route: 048
     Dates: start: 20040423, end: 20040428
  23. MODACIN [Concomitant]
     Route: 042
     Dates: start: 20040429, end: 20040430
  24. PRODIF [Concomitant]
     Route: 042
     Dates: start: 20040429, end: 20040430
  25. GRAN [Concomitant]
     Route: 058
     Dates: start: 20040429, end: 20040429
  26. [THERAPY UNSPECIFIED] [Concomitant]
     Route: 065
     Dates: start: 20040430, end: 20040430

REACTIONS (17)
  - AMYLOIDOSIS [None]
  - ANOREXIA [None]
  - BLOOD CALCIUM DECREASED [None]
  - CARDIAC FAILURE [None]
  - CONSTIPATION [None]
  - DIARRHOEA [None]
  - ENTEROBACTER SEPSIS [None]
  - GASTRITIS BACTERIAL [None]
  - GASTROENTERITIS BACILLUS [None]
  - HYPOXIA [None]
  - NEUTROPENIA [None]
  - PLATELET COUNT DECREASED [None]
  - RENAL FAILURE [None]
  - SEPTIC SHOCK [None]
  - VENTRICULAR TACHYCARDIA [None]
  - VOMITING [None]
  - WHITE BLOOD CELL COUNT DECREASED [None]
